FAERS Safety Report 15404674 (Version 1)
Quarter: 2018Q3

REPORT INFORMATION
  Report Type: Spontaneous
  Country: GB (occurrence: GB)
  Receive Date: 20180919
  Receipt Date: 20180919
  Transmission Date: 20181010
  Serious: Yes (Other)
  Sender: FDA-Public Use
  Company Number: GB-BRISTOL-MYERS SQUIBB COMPANY-BMS-2018-083610

PATIENT
  Age: 60 Year
  Sex: Male

DRUGS (1)
  1. EVOTAZ [Suspect]
     Active Substance: ATAZANAVIR SULFATE\COBICISTAT
     Indication: PRODUCT USED FOR UNKNOWN INDICATION
     Dosage: 300 MG, UNK
     Route: 065
     Dates: start: 20141128

REACTIONS (1)
  - Lung neoplasm malignant [Unknown]
